FAERS Safety Report 24382639 (Version 1)
Quarter: 2024Q4

REPORT INFORMATION
  Report Type: Spontaneous
  Country: US (occurrence: US)
  Receive Date: 20241001
  Receipt Date: 20241001
  Transmission Date: 20250114
  Serious: No
  Sender: AMGEN
  Company Number: US-AMGEN-USASP2024192886

PATIENT
  Age: 57 Year
  Sex: Female

DRUGS (7)
  1. PREDNISONE [Suspect]
     Active Substance: PREDNISONE
     Indication: Acute lung injury
     Dosage: 60 MILLIGRAM, QD
     Route: 048
  2. OXYGEN [Concomitant]
     Active Substance: OXYGEN
     Indication: Acute lung injury
     Dosage: 2 ML/MIN VIA NASAL CANNULA
     Route: 065
  3. OXYGEN [Concomitant]
     Active Substance: OXYGEN
     Dosage: 40 LITER/MIN (HIGH FLOW NASAL CANNULA 50% FIO2)
  4. OXYGEN [Concomitant]
     Active Substance: OXYGEN
     Dosage: 3 L/MIN VIA NASAL CANNULA
  5. THYMOCYTE IMMUNE GLOBULIN NOS [Concomitant]
     Active Substance: THYMOCYTE IMMUNE GLOBULIN NOS
     Indication: Acute lung injury
     Dosage: UNK (FIRST INFUSION)
  6. THYMOCYTE IMMUNE GLOBULIN NOS [Concomitant]
     Active Substance: THYMOCYTE IMMUNE GLOBULIN NOS
     Dosage: UNK (SECOND INFUSION)
  7. METHYLPREDNISOLONE [Concomitant]
     Active Substance: METHYLPREDNISOLONE
     Indication: Acute lung injury
     Dosage: 125 MILLIGRAM, Q8H
     Route: 042

REACTIONS (1)
  - Off label use [Unknown]
